FAERS Safety Report 5665571-6 (Version None)
Quarter: 2008Q1

REPORT INFORMATION
  Report Type: 
  Country: None (occurrence: None)
  Receive Date: 20080314
  Receipt Date: 20071211
  Transmission Date: 20080703
  Serious: No
  Sender: FDA-Public Use
  Company Number: US-ABBOTT-07P-163-0428435-00

PATIENT
  Sex: Male
  Weight: 61.744 kg

DRUGS (2)
  1. HUMIRA [Suspect]
     Indication: ANKYLOSING SPONDYLITIS
     Route: 058
     Dates: start: 20070201, end: 20070801
  2. HUMIRA [Suspect]
     Route: 058
     Dates: start: 20071101

REACTIONS (1)
  - HEPATIC ENZYME INCREASED [None]
